FAERS Safety Report 6282627-8 (Version None)
Quarter: 2009Q3

REPORT INFORMATION
  Report Type: 
  Country: None (occurrence: None)
  Receive Date: 20090724
  Receipt Date: 20090714
  Transmission Date: 20100115
  Serious: Yes (Other)
  Sender: FDA-Public Use
  Company Number: PHHY2009GB08850

PATIENT
  Age: 10 Year
  Sex: Male

DRUGS (2)
  1. RITALIN [Suspect]
     Indication: ATTENTION DEFICIT/HYPERACTIVITY DISORDER
     Dosage: 5 MG, TID
     Dates: start: 20090121
  2. RITALIN [Suspect]
     Dosage: 10 MG, TID
     Dates: start: 20090209

REACTIONS (1)
  - RECTAL HAEMORRHAGE [None]
